FAERS Safety Report 10143449 (Version 4)
Quarter: 2014Q2

REPORT INFORMATION
  Report Type: Report from Study
  Country: AU (occurrence: AU)
  Receive Date: 20140430
  Receipt Date: 20140620
  Transmission Date: 20141212
  Serious: Yes (Hospitalization)
  Sender: FDA-Public Use
  Company Number: AU-PFIZER INC-2014111482

PATIENT
  Age: 62 Year
  Sex: Female

DRUGS (11)
  1. IRINOTECAN HCL [Suspect]
     Indication: COLORECTAL CANCER METASTATIC
     Dosage: 180 MG/M2, (314.0 MG) CYCLIC (DAY 1 OF EACH 14 DAY CYCLE)
     Route: 042
     Dates: start: 20130805, end: 20140120
  2. E7820 [Suspect]
     Indication: COLORECTAL CANCER METASTATIC
     Dosage: 70 MG, (1 IN 1 D)
     Route: 048
     Dates: start: 20130806, end: 20130909
  3. E7820 [Suspect]
     Dosage: 70 MG, (1 IN 1 D)
     Route: 048
     Dates: start: 20130916, end: 20131209
  4. E7820 [Suspect]
     Dosage: 50 MG, (1 IN 1 D)
     Route: 048
     Dates: start: 20131210, end: 20140123
  5. E7820 [Suspect]
     Dosage: 50 MG, (1 IN 1 D)
     Route: 048
     Dates: start: 20140125
  6. ATROPINE [Concomitant]
     Indication: PROPHYLAXIS AGAINST DIARRHOEA
     Dosage: UNK
     Route: 058
     Dates: start: 20130805
  7. ONDANSETRON [Concomitant]
     Indication: PROPHYLAXIS OF NAUSEA AND VOMITING
     Dosage: UNK
     Route: 048
     Dates: start: 20130805
  8. PERINDOPRIL [Concomitant]
     Indication: HYPERTENSION
     Dosage: UNK
     Route: 048
     Dates: start: 20130723
  9. PANTOPRAZOLE [Concomitant]
     Indication: GASTROOESOPHAGEAL REFLUX DISEASE
     Dosage: UNK
     Route: 048
     Dates: start: 20130826
  10. METOCLOPRAMIDE [Concomitant]
     Indication: NAUSEA
     Dosage: UNK
     Route: 048
     Dates: start: 20131014
  11. LOPERAMIDE [Concomitant]
     Indication: DIARRHOEA
     Dosage: UNK
     Route: 048
     Dates: start: 20130916

REACTIONS (1)
  - Lobar pneumonia [Recovered/Resolved]
